FAERS Safety Report 10162279 (Version 1)
Quarter: 2014Q2

REPORT INFORMATION
  Report Type: Spontaneous
  Country: US (occurrence: US)
  Receive Date: 20140509
  Receipt Date: 20140509
  Transmission Date: 20141212
  Serious: Yes (Other)
  Sender: FDA-Public Use
  Company Number: US-BAYER-2014-068685

PATIENT
  Age: 37 Year
  Sex: Female

DRUGS (6)
  1. YAZ [Suspect]
     Dosage: UNK
     Route: 048
     Dates: start: 20080101, end: 20100101
  2. YASMIN [Suspect]
     Dosage: UNK
     Route: 048
     Dates: start: 20080101, end: 20100101
  3. BEYAZ [Suspect]
     Dosage: UNK
     Route: 048
     Dates: start: 20080101, end: 20100101
  4. SAFYRAL [Suspect]
     Dosage: UNK
     Route: 048
     Dates: start: 20080101, end: 20100101
  5. OCELLA [Suspect]
     Dosage: UNK
     Route: 048
     Dates: start: 20080101, end: 20100101
  6. GIANVI [Suspect]
     Dosage: UNK
     Route: 048
     Dates: start: 20080101, end: 20100101

REACTIONS (1)
  - Deep vein thrombosis [None]
